FAERS Safety Report 4633012-3 (Version None)
Quarter: 2005Q2

REPORT INFORMATION
  Report Type: 
  Country: None (occurrence: None)
  Receive Date: 20050412
  Receipt Date: 20050330
  Transmission Date: 20051028
  Serious: Yes (Other)
  Sender: FDA-Public Use
  Company Number: JP-JNJFOC-20050205806

PATIENT
  Age: 29 Year
  Sex: Male

DRUGS (2)
  1. ITRIZOLE [Suspect]
     Route: 049
  2. ITRIZOLE [Suspect]
     Indication: ONYCHOMYCOSIS
     Route: 049

REACTIONS (1)
  - BLOOD CREATINE PHOSPHOKINASE INCREASED [None]
